FAERS Safety Report 9690236 (Version 1)
Quarter: 2013Q4

REPORT INFORMATION
  Report Type: Spontaneous
  Country: US (occurrence: None)
  Receive Date: 20131114
  Receipt Date: 20131114
  Transmission Date: 20140711
  Serious: Yes (Disabling, Other)
  Sender: FDA-Public Use
  Company Number: None

PATIENT
  Age: 54 Year
  Sex: Female
  Weight: 70.31 kg

DRUGS (1)
  1. ASTHMANEFRIN [Suspect]

REACTIONS (7)
  - Device occlusion [None]
  - Device malfunction [None]
  - Drug ineffective [None]
  - Oropharyngeal pain [None]
  - Chest pain [None]
  - Dyspnoea [None]
  - Anger [None]
